FAERS Safety Report 6620724-5 (Version None)
Quarter: 2010Q1

REPORT INFORMATION
  Report Type: 
  Country: None (occurrence: None)
  Receive Date: 20100309
  Receipt Date: 20100222
  Transmission Date: 20100710
  Serious: Yes (Hospitalization, Other)
  Sender: FDA-Public Use
  Company Number: US-CELGENEUS-163-21880-09110281

PATIENT
  Sex: Male

DRUGS (10)
  1. REVLIMID [Suspect]
     Indication: MULTIPLE MYELOMA
     Route: 048
     Dates: start: 20090701, end: 20090101
  2. REVLIMID [Suspect]
     Route: 048
     Dates: start: 20071101
  3. REVLIMID [Suspect]
     Route: 048
     Dates: start: 20091101
  4. COUMADIN [Concomitant]
     Indication: ANTICOAGULANT THERAPY
     Route: 065
  5. COUMADIN [Concomitant]
     Route: 065
  6. RENAL VITAMIN [Concomitant]
     Indication: DRUG USE FOR UNKNOWN INDICATION
     Route: 065
  7. EPOGEN [Concomitant]
     Indication: DIALYSIS
     Route: 065
  8. LIPITOR [Concomitant]
     Indication: DRUG USE FOR UNKNOWN INDICATION
     Route: 048
  9. TOPROL-XL [Concomitant]
     Indication: DRUG USE FOR UNKNOWN INDICATION
     Route: 048
  10. REVELA [Concomitant]
     Indication: DRUG USE FOR UNKNOWN INDICATION
     Route: 048

REACTIONS (8)
  - ANAEMIA [None]
  - BASAL CELL CARCINOMA [None]
  - BLOOD CREATININE INCREASED [None]
  - CHOLELITHIASIS [None]
  - DEEP VEIN THROMBOSIS [None]
  - PANCYTOPENIA [None]
  - PLATELET COUNT DECREASED [None]
  - SQUAMOUS CELL CARCINOMA [None]
